FAERS Safety Report 8891814 (Version 2)
Quarter: 2013Q1

REPORT INFORMATION
  Report Type: Spontaneous
  Country: US (occurrence: None)
  Receive Date: 20121031
  Receipt Date: 20121211
  Transmission Date: 20140127
  Serious: Yes (Other)
  Sender: FDA-Public Use
  Company Number: AUR-APL-2012-04604

PATIENT
  Age: 85 Year
  Sex: Female
  Weight: 63.49 kg

DRUGS (6)
  1. LISINOPRIL (LISINOPRIL) [Suspect]
     Indication: HYPERTENSION
     Dosage: 1 D
     Dates: start: 2010
  2. HYDROCHLOROTHIAZIDE (HYDROCHLOROTHIAZIDE) [Suspect]
     Indication: DIURETIC THERAPY
     Dosage: 1 D
     Dates: start: 2010
  3. CALTRATE WITH VITAMIN D [Suspect]
     Indication: MINERAL SUPPLEMENTATION
  4. TRAMADOL (TRAMADOL) [Concomitant]
  5. TYLENOL (PARACETAMOL) [Concomitant]
  6. CALCIUM CARBONATE [Suspect]

REACTIONS (3)
  - Asthma [None]
  - Systemic lupus erythematosus [None]
  - Somnolence [None]
